FAERS Safety Report 13899476 (Version 1)
Quarter: 2017Q3

REPORT INFORMATION
  Report Type: Spontaneous
  Country: US (occurrence: US)
  Receive Date: 20170824
  Receipt Date: 20170824
  Transmission Date: 20171127
  Serious: No
  Sender: FDA-Public Use
  Company Number: US-CELGENEUS-USA-20170805999

PATIENT
  Age: 66 Year
  Sex: Female

DRUGS (1)
  1. OTEZLA [Suspect]
     Active Substance: APREMILAST
     Indication: PSORIASIS
     Dosage: 10 MG, 20MG, 30 MG (STARTER PACK)
     Route: 048
     Dates: start: 20170815

REACTIONS (4)
  - Retching [Unknown]
  - Nausea [Unknown]
  - Headache [Unknown]
  - Rhinorrhoea [Unknown]

NARRATIVE: CASE EVENT DATE: 201708
